FAERS Safety Report 5044327-1 (Version None)
Quarter: 2006Q2

REPORT INFORMATION
  Report Type: 
  Country: None (occurrence: None)
  Receive Date: 20060629
  Receipt Date: 20060623
  Transmission Date: 20061013
  Serious: Yes (Death, Hospitalization)
  Sender: FDA-Public Use
  Company Number: CLOF-10262

PATIENT

DRUGS (45)
  1. CLOFARABINE [Suspect]
     Indication: ACUTE MYELOID LEUKAEMIA
     Dosage: 75.2 MG QD IV
     Route: 042
     Dates: end: 20060618
  2. CYTARABINE [Suspect]
     Indication: ACUTE MYELOID LEUKAEMIA
     Dosage: 3760 MG QD IV
     Route: 042
     Dates: end: 20060618
  3. ACETAMINOPHEN [Concomitant]
  4. ACYCLOVIR [Concomitant]
  5. AMIKACIN SULFATE [Concomitant]
  6. AMILORIDE [Concomitant]
  7. ALPRAZOLAM [Concomitant]
  8. AMPHOTERICIN B [Concomitant]
  9. ATENOLOL [Concomitant]
  10. CALCIUM POLYCARBOPHIL [Concomitant]
  11. CALCIUM CARBONATE-VITAMIN D [Concomitant]
  12. CEFEPIME [Concomitant]
  13. CHLORHEXIDINE GLUCONATE [Concomitant]
  14. DAPTOMYCIN [Concomitant]
  15. DIPHENHYDRAMINE HCL [Concomitant]
  16. ETOMIDATE [Concomitant]
  17. FLUCONAZOLE [Concomitant]
  18. HEPARIN LOCK-FLUSH [Concomitant]
  19. HYDROCORTISONE SODIUM SUCCINATE [Concomitant]
  20. HYDROCHLOROTHIAZIDE [Concomitant]
  21. LINEZOLID [Concomitant]
  22. MAGNESIUM SULFATE [Concomitant]
  23. MIDAZOLAM HYDROCHLORIDE [Concomitant]
  24. METRONIDAZOLE [Concomitant]
  25. MORPHINE [Concomitant]
  26. OCTREOTIDE ACETATE [Concomitant]
  27. ONDANSETRON HCL [Concomitant]
  28. PANTOPRAZOLE SODIUM [Concomitant]
  29. PAROXETINE HCL [Concomitant]
  30. POLYVINYL ALCOHOL [Concomitant]
  31. PREDNISOLONE ACETATE [Concomitant]
  32. PROMETHAZINE [Concomitant]
  33. SODIUM BICARBONATE [Concomitant]
  34. SODIUIM CHLORIDE [Concomitant]
  35. TRIAMCINOLONE-EUCERIN [Concomitant]
  36. ZOLPIDEM TARTRATE [Concomitant]
  37. BAPTIST MUCOSITIS MOUTHWASH [Concomitant]
  38. SODIUM CHLORIDE 0.9% WITH KCL 20 MEQ [Concomitant]
  39. VASOPRESSIN [Concomitant]
  40. DOPAMINE [Concomitant]
  41. EPINEPHRINE [Concomitant]
  42. HUMULIN R [Concomitant]
  43. NOREPINEPHRINE BITARTRATE [Concomitant]
  44. POTASSIUM CHLORIDE [Concomitant]
  45. POTASSIUM PHOSPHATES [Concomitant]

REACTIONS (14)
  - ALANINE AMINOTRANSFERASE INCREASED [None]
  - ALPHA HAEMOLYTIC STREPTOCOCCAL INFECTION [None]
  - ASPARTATE AMINOTRANSFERASE INCREASED [None]
  - BLOOD PRESSURE DECREASED [None]
  - BONE MARROW FAILURE [None]
  - CLOSTRIDIUM DIFFICILE TOXIN TEST POSITIVE [None]
  - DYSPNOEA [None]
  - NEUTROPENIA [None]
  - OXYGEN SATURATION DECREASED [None]
  - PANCYTOPENIA [None]
  - RESPIRATORY DISTRESS [None]
  - SEPSIS [None]
  - SINUS TACHYCARDIA [None]
  - URINARY TRACT INFECTION [None]
